FAERS Safety Report 7405703-2 (Version None)
Quarter: 2011Q2

REPORT INFORMATION
  Report Type: 
  Country: None (occurrence: None)
  Receive Date: 20110411
  Receipt Date: 20110406
  Transmission Date: 20111010
  Serious: Yes (Other)
  Sender: FDA-Public Use
  Company Number: JP-GENZYME-FLUD-1000895

PATIENT
  Age: 42 Year
  Sex: Male

DRUGS (5)
  1. TACROLIMUS [Concomitant]
     Indication: PROPHYLAXIS AGAINST GRAFT VERSUS HOST DISEASE
     Route: 065
  2. BUSULFAN [Suspect]
     Indication: CORD BLOOD TRANSPLANT THERAPY
     Dosage: UNK
     Route: 065
  3. BUSULFAN [Suspect]
     Indication: ACUTE MYELOID LEUKAEMIA
  4. FLUDARA [Suspect]
     Indication: ACUTE MYELOID LEUKAEMIA
     Dosage: 150 MG/M2, UNK
     Route: 065
  5. FLUDARA [Suspect]
     Indication: CORD BLOOD TRANSPLANT THERAPY

REACTIONS (3)
  - CHRONIC GRAFT VERSUS HOST DISEASE [None]
  - TYPE III IMMUNE COMPLEX MEDIATED REACTION [None]
  - HISTIOCYTOSIS HAEMATOPHAGIC [None]
